FAERS Safety Report 21379570 (Version 2)
Quarter: 2022Q3

REPORT INFORMATION
  Report Type: Report from Study
  Country: MX (occurrence: MX)
  Receive Date: 20220927
  Receipt Date: 20220928
  Transmission Date: 20221027
  Serious: Yes (Death, Other)
  Sender: FDA-Public Use
  Company Number: MX-NOVARTISPH-NVSC2022MX217579

PATIENT
  Age: 88 Year
  Sex: Female
  Weight: 45 kg

DRUGS (1)
  1. EXELON [Suspect]
     Active Substance: RIVASTIGMINE TARTRATE
     Indication: Dementia Alzheimer^s type
     Dosage: 1 DOSAGE FORM, QD (STARTED AROUND 5 YEARS AGO)
     Route: 062

REACTIONS (3)
  - Multiple organ dysfunction syndrome [Fatal]
  - Posture abnormal [Unknown]
  - Kyphosis [Unknown]

NARRATIVE: CASE EVENT DATE: 20220529
